FAERS Safety Report 16053908 (Version 1)
Quarter: 2019Q1

REPORT INFORMATION
  Report Type: Spontaneous
  Country: NL (occurrence: NL)
  Receive Date: 20190308
  Receipt Date: 20190308
  Transmission Date: 20190418
  Serious: Yes (Life-Threatening)
  Sender: FDA-Public Use
  Company Number: NL-MYLANLABS-2019M1021621

PATIENT
  Age: 43 Year
  Sex: Male
  Weight: 100 kg

DRUGS (1)
  1. CIPROFLOXACIN. [Suspect]
     Active Substance: CIPROFLOXACIN
     Indication: CYSTITIS
     Dosage: 2D1T
     Route: 048
     Dates: start: 20180625, end: 20180702

REACTIONS (3)
  - Hepatic failure [Not Recovered/Not Resolved]
  - Rash [Not Recovered/Not Resolved]
  - Transient ischaemic attack [Not Recovered/Not Resolved]

NARRATIVE: CASE EVENT DATE: 20180715
